FAERS Safety Report 16949675 (Version 2)
Quarter: 2019Q4

REPORT INFORMATION
  Report Type: Spontaneous
  Country: FR (occurrence: FR)
  Receive Date: 20191023
  Receipt Date: 20191212
  Transmission Date: 20200122
  Serious: Yes (Hospitalization, Other)
  Sender: FDA-Public Use
  Company Number: FR-BRISTOL-MYERS SQUIBB COMPANY-BMS-2019-088133

PATIENT
  Age: 58 Year
  Sex: Male
  Weight: 130 kg

DRUGS (1)
  1. OPDIVO [Suspect]
     Active Substance: NIVOLUMAB
     Indication: RENAL CANCER METASTATIC
     Dosage: UNK
     Route: 042
     Dates: start: 201804, end: 20190725

REACTIONS (3)
  - Cholestasis [Unknown]
  - Cell death [Unknown]
  - Bile duct cancer [Unknown]
